FAERS Safety Report 4728164-0 (Version None)
Quarter: 2005Q3

REPORT INFORMATION
  Report Type: 
  Country: None (occurrence: None)
  Receive Date: 20050727
  Receipt Date: 20050503
  Transmission Date: 20060218
  Serious: Yes (Hospitalization, Other)
  Sender: FDA-Public Use
  Company Number: 2005102739

PATIENT
  Age: 15 Year
  Sex: Female

DRUGS (3)
  1. ATARAX [Suspect]
     Indication: ILL-DEFINED DISORDER
     Dosage: ORAL
     Route: 048
     Dates: start: 20050412, end: 20050412
  2. ASCORBIC ACID [Concomitant]
  3. METOCLOPRAMIDE HYDROCHLORIDE [Concomitant]

REACTIONS (4)
  - INTENTIONAL MISUSE [None]
  - OVERDOSE [None]
  - PRURITUS [None]
  - SUICIDE ATTEMPT [None]
